FAERS Safety Report 9275319 (Version 1)
Quarter: 2013Q2

REPORT INFORMATION
  Report Type: Spontaneous
  Country: GB (occurrence: GB)
  Receive Date: 20130507
  Receipt Date: 20130507
  Transmission Date: 20140414
  Serious: Yes (Life-Threatening, Other)
  Sender: FDA-Public Use
  Company Number: PHHY2013GB043312

PATIENT
  Age: 35 Year
  Sex: Male
  Weight: 65 kg

DRUGS (2)
  1. GILENYA [Suspect]
     Indication: MULTIPLE SCLEROSIS
     Route: 048
     Dates: start: 2012
  2. CITALOPRAM [Interacting]
     Indication: DEPRESSION
     Route: 048
     Dates: start: 20130301, end: 20130325

REACTIONS (4)
  - Feeling abnormal [Recovered/Resolved]
  - Sleep disorder [Recovered/Resolved]
  - Dyspnoea [Recovered/Resolved]
  - Drug interaction [Unknown]
